FAERS Safety Report 19263485 (Version 1)
Quarter: 2021Q2

REPORT INFORMATION
  Report Type: Spontaneous
  Country: US (occurrence: US)
  Receive Date: 20210517
  Receipt Date: 20210517
  Transmission Date: 20210717
  Serious: No
  Sender: FDA-Public Use
  Company Number: US-CELLTRION INC.-2021US002664

PATIENT

DRUGS (4)
  1. TRUXIMA [Suspect]
     Active Substance: RITUXIMAB-ABBS
     Dosage: 900 MG (375 MG/M2) (4 WEEKLY DOSES)
     Route: 042
     Dates: start: 20210210
  2. TRUXIMA [Suspect]
     Active Substance: RITUXIMAB-ABBS
     Dosage: 900 MG (375 MG/M2) (4 WEEKLY DOSES)
     Route: 042
     Dates: start: 20210225
  3. TRUXIMA [Suspect]
     Active Substance: RITUXIMAB-ABBS
     Dosage: 900 MG (375 MG/M2) (4 WEEKLY DOSES)
     Route: 042
     Dates: start: 20210218
  4. TRUXIMA [Suspect]
     Active Substance: RITUXIMAB-ABBS
     Indication: DERMATOMYOSITIS
     Dosage: 900 MG (375 MG/M2) (4 WEEKLY DOSES)
     Route: 042
     Dates: start: 20210203

REACTIONS (2)
  - Off label use [Unknown]
  - Headache [Recovered/Resolved]

NARRATIVE: CASE EVENT DATE: 20210203
